FAERS Safety Report 13677071 (Version 1)
Quarter: 2017Q2

REPORT INFORMATION
  Report Type: Report from Study
  Country: JP (occurrence: JP)
  Receive Date: 20170622
  Receipt Date: 20170622
  Transmission Date: 20170830
  Serious: Yes (Other)
  Sender: FDA-Public Use
  Company Number: PHHY2011JP28545

PATIENT
  Age: 57 Year
  Sex: Female
  Weight: 48 kg

DRUGS (8)
  1. NEORAL [Concomitant]
     Active Substance: CYCLOSPORINE
     Indication: TUBEROUS SCLEROSIS
     Dosage: 180 MG, QD
     Route: 048
  2. AFINITOR [Suspect]
     Active Substance: EVEROLIMUS
     Indication: METASTATIC RENAL CELL CARCINOMA
     Dosage: 5 MG, QD
     Route: 048
     Dates: start: 20100723, end: 20100809
  3. ALLOPURINOL. [Concomitant]
     Active Substance: ALLOPURINOL
     Indication: HYPERURICAEMIA
     Dosage: 100 MG, QD
     Route: 048
     Dates: start: 20100527
  4. MAGMITT KENEI [Concomitant]
     Indication: TUBEROUS SCLEROSIS
     Dosage: 500 MG, QD
     Route: 048
     Dates: start: 20090430
  5. MEVALOTIN [Concomitant]
     Active Substance: PRAVASTATIN SODIUM
     Indication: HYPERLIPIDAEMIA
     Dosage: 5 MG, QD
     Route: 048
     Dates: start: 20080731
  6. LOXOPROFEN [Concomitant]
     Active Substance: LOXOPROFEN
     Indication: TUBEROUS SCLEROSIS
     Dosage: 120 MG, QD
     Route: 048
     Dates: start: 20080731
  7. CELLCEPT [Suspect]
     Active Substance: MYCOPHENOLATE MOFETIL\MYCOPHENOLATE MOFETIL HYDROCHLORIDE
     Indication: TUBEROUS SCLEROSIS
     Dosage: 750 MG, QD
     Route: 048
     Dates: start: 20100527
  8. PREDONINE [Concomitant]
     Active Substance: PREDNISOLONE
     Indication: TUBEROUS SCLEROSIS
     Dosage: 5 MG, QD
     Route: 048

REACTIONS (5)
  - Platelet count decreased [Unknown]
  - Gamma-glutamyltransferase increased [Unknown]
  - Diarrhoea [Unknown]
  - Liver disorder [Recovering/Resolving]
  - Stomatitis [Recovered/Resolved]

NARRATIVE: CASE EVENT DATE: 20100804
